FAERS Safety Report 15791202 (Version 1)
Quarter: 2019Q1

REPORT INFORMATION
  Report Type: Spontaneous
  Country: US (occurrence: US)
  Receive Date: 20190104
  Receipt Date: 20190104
  Transmission Date: 20190417
  Serious: Yes (Other)
  Sender: FDA-Public Use
  Company Number: US-SEPTODONT-201804990

PATIENT
  Sex: Female

DRUGS (4)
  1. ZOLOFT [Concomitant]
     Active Substance: SERTRALINE HYDROCHLORIDE
     Indication: DEPRESSION
     Dosage: NOT SPECIFIED
  2. SEPTOCAINE AND EPINEPHRINE [Suspect]
     Active Substance: ARTICAINE HYDROCHLORIDE\EPINEPHRINE BITARTRATE
     Indication: DENTAL LOCAL ANAESTHESIA
     Dosage: 1 CARTRIDGE
     Route: 004
     Dates: start: 20180926, end: 20180926
  3. MELOXICAM. [Concomitant]
     Active Substance: MELOXICAM
     Dosage: NOT SPECIFIED
  4. 2% LIDOCAINE, 1:100,000 EPINEPHRINE [Suspect]
     Active Substance: EPINEPHRINE BITARTRATE\LIDOCAINE HYDROCHLORIDE
     Indication: DENTAL LOCAL ANAESTHESIA
     Dosage: 1 CARTRIDGE
     Route: 004
     Dates: start: 20180926, end: 20180926

REACTIONS (4)
  - Paraesthesia oral [Recovering/Resolving]
  - Cellulitis [Unknown]
  - Bone loss [Unknown]
  - Post procedural swelling [Unknown]

NARRATIVE: CASE EVENT DATE: 2018
